FAERS Safety Report 17912518 (Version 4)
Quarter: 2021Q3

REPORT INFORMATION
  Report Type: Other
  Country: BR (occurrence: BR)
  Receive Date: 20200618
  Receipt Date: 20210816
  Transmission Date: 20211014
  Serious: Yes (Other)
  Sender: FDA-Public Use
  Company Number: BR-ROCHE-2623231

PATIENT
  Age: 39 Year
  Sex: Female

DRUGS (1)
  1. XOLAIR [Suspect]
     Active Substance: OMALIZUMAB
     Indication: CHRONIC SPONTANEOUS URTICARIA
     Dosage: UNK
     Route: 065

REACTIONS (12)
  - Malaise [Recovering/Resolving]
  - Headache [Recovered/Resolved]
  - Hypertension [Recovering/Resolving]
  - Hyperhidrosis [Unknown]
  - Tachycardia [Recovering/Resolving]
  - Angioedema [Unknown]
  - Neck pain [Unknown]
  - Palpitations [Not Recovered/Not Resolved]
  - Arrhythmia [Recovering/Resolving]
  - Hypertension [Recovering/Resolving]
  - Hyperventilation [Recovering/Resolving]
  - Diarrhoea [Recovering/Resolving]

NARRATIVE: CASE EVENT DATE: 202002
